FAERS Safety Report 4905296-5 (Version None)
Quarter: 2006Q1

REPORT INFORMATION
  Report Type: 
  Country: None (occurrence: None)
  Receive Date: 20060207
  Receipt Date: 20060207
  Transmission Date: 20060701
  Serious: Yes (Death, Life-Threatening)
  Sender: FDA-Public Use
  Company Number: None

PATIENT
  Sex: Female
  Weight: 115.2136 kg

DRUGS (2)
  1. ABILIFY [Suspect]
     Indication: SCHIZOAFFECTIVE DISORDER
     Dosage: 5MG.  ONCE DAILY  PO
     Route: 048
     Dates: start: 20051129, end: 20051130
  2. ZOLOFT [Suspect]
     Indication: SCHIZOAFFECTIVE DISORDER
     Dosage: 50MG   ONCE DAILY  PO
     Route: 048
     Dates: start: 20051129, end: 20051217

REACTIONS (8)
  - APHASIA [None]
  - DEPRESSION [None]
  - DIFFICULTY IN WALKING [None]
  - DRUG LEVEL INCREASED [None]
  - DRUG SCREEN POSITIVE [None]
  - FEELING ABNORMAL [None]
  - LOSS OF CONSCIOUSNESS [None]
  - VISUAL DISTURBANCE [None]
